FAERS Safety Report 7605535-6 (Version None)
Quarter: 2011Q3

REPORT INFORMATION
  Report Type: 
  Country: None (occurrence: None)
  Receive Date: 20110712
  Receipt Date: 20110712
  Transmission Date: 20111222
  Serious: Yes (Life-Threatening, Hospitalization)
  Sender: FDA-Public Use
  Company Number: None

PATIENT
  Age: 34 Year
  Sex: Female
  Weight: 87.3 kg

DRUGS (1)
  1. DESOGESTREL AND ETHINYL ESTRADIOL [Suspect]
     Indication: ACNE
     Dosage: 1 TAB EVERY DAY PO
     Route: 048
     Dates: start: 20101015, end: 20110202

REACTIONS (2)
  - PULMONARY EMBOLISM [None]
  - CARDIAC ARREST [None]
